FAERS Safety Report 5815912-1 (Version None)
Quarter: 2008Q3

REPORT INFORMATION
  Report Type: 
  Country: None (occurrence: None)
  Receive Date: 20080721
  Receipt Date: 20080711
  Transmission Date: 20090109
  Serious: Yes (Death, Other)
  Sender: FDA-Public Use
  Company Number: GB-ROCHE-554195

PATIENT
  Age: 15 Year
  Sex: Male

DRUGS (9)
  1. MYCOPHENOLATE MOFETIL [Suspect]
     Route: 065
  2. MYCOPHENOLATE MOFETIL [Suspect]
     Dosage: HIGH DOSE.
     Route: 065
  3. CASPOFUNGIN ACETATE [Suspect]
     Indication: LUNG DISORDER
     Route: 042
  4. PREDNISOLONE [Suspect]
     Indication: LIVER TRANSPLANT
     Route: 065
  5. PREDNISOLONE [Suspect]
     Dosage: HIGH DOSE.
     Route: 065
  6. PROGRAF [Suspect]
     Indication: LIVER TRANSPLANT
     Dosage: ONLY GENERIC NAME REPORTED (TACROLIMUS).
     Route: 065
  7. PROGRAF [Suspect]
     Route: 065
  8. VORICONAZOLE [Suspect]
     Indication: LUNG DISORDER
     Route: 065
  9. METHYLPREDNISOLONE [Concomitant]
     Dosage: PULSED ADMINISTRATION.

REACTIONS (9)
  - ABDOMINAL PAIN [None]
  - AUTOIMMUNE HEPATITIS [None]
  - BRONCHOPULMONARY ASPERGILLOSIS [None]
  - HAEMOPTYSIS [None]
  - HYDROPNEUMOTHORAX [None]
  - JAUNDICE [None]
  - LUNG DISORDER [None]
  - PNEUMOTHORAX [None]
  - RESPIRATORY FAILURE [None]
